FAERS Safety Report 4349399-5 (Version None)
Quarter: 2004Q2

REPORT INFORMATION
  Report Type: 
  Country: None (occurrence: None)
  Receive Date: 20040428
  Receipt Date: 20040415
  Transmission Date: 20050107
  Serious: Yes (Hospitalization)
  Sender: FDA-Public Use
  Company Number: CH-GLAXOSMITHKLINE-B0330191A

PATIENT
  Age: 53 Year
  Sex: Female
  Weight: 50 kg

DRUGS (3)
  1. DEROXAT [Suspect]
     Indication: MAJOR DEPRESSION
     Dosage: 20MG THREE TIMES PER DAY
     Route: 048
     Dates: start: 20040404
  2. CARBAMAZEPINE [Concomitant]
     Indication: MAJOR DEPRESSION
     Dosage: 300MG TWICE PER DAY
     Route: 048
  3. BUSPIRONE HCL [Concomitant]
     Indication: MAJOR DEPRESSION
     Dosage: 5MG TWICE PER DAY
     Route: 048

REACTIONS (6)
  - ACTIVITIES OF DAILY LIVING IMPAIRED [None]
  - APATHY [None]
  - CONDITION AGGRAVATED [None]
  - DRY MOUTH [None]
  - HYPERHIDROSIS [None]
  - OVERDOSE [None]
